FAERS Safety Report 4500936-7 (Version None)
Quarter: 2004Q4

REPORT INFORMATION
  Report Type: 
  Country: None (occurrence: None)
  Receive Date: 20041110
  Receipt Date: 20041028
  Transmission Date: 20050328
  Serious: Yes (Hospitalization)
  Sender: FDA-Public Use
  Company Number: 2004029713

PATIENT
  Age: 5 Month
  Sex: Male

DRUGS (1)
  1. DIFLUCAN [Suspect]
     Indication: FUNGAEMIA
     Dosage: 6 M/KG, ORAL
     Route: 048

REACTIONS (2)
  - DRUG INEFFECTIVE [None]
  - FUNGAEMIA [None]
